FAERS Safety Report 15331865 (Version 2)
Quarter: 2018Q3

REPORT INFORMATION
  Report Type: Not Available
  Country: US (occurrence: US)
  Receive Date: 20180829
  Receipt Date: 20180912
  Transmission Date: 20181010
  Serious: Yes (Hospitalization)
  Sender: FDA-Public Use
  Company Number: US-NEUROCRINE BIOSCIENCES INC.-2018NBI02592

PATIENT
  Age: 26 Year
  Sex: Male

DRUGS (23)
  1. ASPIRIN 81 [Concomitant]
     Active Substance: ASPIRIN
  2. BACITRACIN ZINC. [Concomitant]
     Active Substance: BACITRACIN ZINC
  3. MINTOX MAXIMUM STRENGTH [Concomitant]
     Active Substance: ALUMINUM HYDROXIDE\DIMETHICONE\MAGNESIUM HYDROXIDE
  4. INGREZZA [Suspect]
     Active Substance: VALBENAZINE
     Indication: PRODUCT USED FOR UNKNOWN INDICATION
     Route: 048
     Dates: start: 20180117, end: 2018
  5. VENTOLIN [Concomitant]
     Active Substance: ALBUTEROL SULFATE
  6. CALCIUM CARBONATE ANTACID [Concomitant]
  7. PANTOPRAZOLE [Concomitant]
     Active Substance: PANTOPRAZOLE
  8. TRIAMCINOLONE [Concomitant]
     Active Substance: TRIAMCINOLONE
  9. VITAMIN B12 [Concomitant]
     Active Substance: CYANOCOBALAMIN
  10. LOPERAMIDE [Concomitant]
     Active Substance: LOPERAMIDE
  11. MILK OF MAGNESIA [Concomitant]
     Active Substance: MAGNESIUM HYDROXIDE
  12. ACETAMINOPHEN. [Concomitant]
     Active Substance: ACETAMINOPHEN
  13. CEROVITE JR [Concomitant]
  14. DOK [Concomitant]
     Active Substance: DOCUSATE SODIUM
  15. TRIHEXYPHENIDYL [Concomitant]
     Active Substance: TRIHEXYPHENIDYL
  16. BISACODYL EC [Concomitant]
     Active Substance: BISACODYL
  17. CLOTRIMAZOLE AF [Concomitant]
  18. FEXOFENADINE HYDROCHLORIDE. [Concomitant]
     Active Substance: FEXOFENADINE HYDROCHLORIDE
  19. IBUPROFEN. [Concomitant]
     Active Substance: IBUPROFEN
  20. SEROQUEL [Concomitant]
     Active Substance: QUETIAPINE FUMARATE
  21. BANOPHEN [Concomitant]
     Active Substance: DIPHENHYDRAMINE HYDROCHLORIDE
  22. BISMATROL [Concomitant]
     Active Substance: BISMUTH SUBSALICYLATE
  23. VITAMIN E [Concomitant]
     Active Substance: .ALPHA.-TOCOPHEROL

REACTIONS (1)
  - Hospitalisation [Recovered/Resolved]

NARRATIVE: CASE EVENT DATE: 20180603
